FAERS Safety Report 17706498 (Version 2)
Quarter: 2020Q4

REPORT INFORMATION
  Report Type: Spontaneous
  Country: US (occurrence: US)
  Receive Date: 20200424
  Receipt Date: 20201012
  Transmission Date: 20210113
  Serious: No
  Sender: FDA-Public Use
  Company Number: US-TEVA-2020-US-1229484

PATIENT
  Age: 22 Year
  Sex: Female

DRUGS (3)
  1. AJOVY [Suspect]
     Active Substance: FREMANEZUMAB-VFRM
     Dosage: SHE HAS HAD 3 DOSE OF AJOVY
     Route: 058
     Dates: start: 202001
  2. VENLAFAXINE [Concomitant]
     Active Substance: VENLAFAXINE HYDROCHLORIDE
  3. AJOVY [Suspect]
     Active Substance: FREMANEZUMAB-VFRM

REACTIONS (7)
  - Respiratory symptom [Recovered/Resolved]
  - Arthralgia [Unknown]
  - Pyrexia [Unknown]
  - Pyrexia [Unknown]
  - Pyrexia [Recovered/Resolved]
  - Lymphadenopathy [Unknown]
  - Pruritus [Unknown]

NARRATIVE: CASE EVENT DATE: 20200317
